FAERS Safety Report 14959070 (Version 2)
Quarter: 2018Q2

REPORT INFORMATION
  Report Type: Spontaneous
  Country: TR (occurrence: TR)
  Receive Date: 20180531
  Receipt Date: 20180612
  Transmission Date: 20180711
  Serious: Yes (Hospitalization)
  Sender: FDA-Public Use
  Company Number: TR-IGSA-SR10006425

PATIENT
  Sex: Male
  Weight: 84 kg

DRUGS (4)
  1. GAMUNEX-C [Suspect]
     Active Substance: HUMAN IMMUNOGLOBULIN G
     Dosage: UNK
     Route: 058
  2. GAMUNEX-C [Suspect]
     Active Substance: HUMAN IMMUNOGLOBULIN G
     Dosage: UNK
     Route: 058
  3. GAMUNEX-C [Suspect]
     Active Substance: HUMAN IMMUNOGLOBULIN G
     Indication: IMMUNODEFICIENCY COMMON VARIABLE
     Dosage: 10 G, Q.WK.
     Route: 058
     Dates: start: 20170906, end: 20171215
  4. AZITRO [Suspect]
     Active Substance: AZITHROMYCIN
     Indication: IMMUNODEFICIENCY COMMON VARIABLE
     Dosage: 500 MG, Q.WK.
     Route: 048
     Dates: start: 20141205

REACTIONS (2)
  - Skin mass [Not Recovered/Not Resolved]
  - Tissue infiltration [Not Recovered/Not Resolved]
